FAERS Safety Report 12886745 (Version 1)
Quarter: 2016Q4

REPORT INFORMATION
  Report Type: Report from Study
  Country: SE (occurrence: SE)
  Receive Date: 20161026
  Receipt Date: 20161026
  Transmission Date: 20170207
  Serious: Yes (Other)
  Sender: FDA-Public Use
  Company Number: SE-KADMON PHARMACEUTICALS, LLC-KAD201610-003803

PATIENT
  Age: 48 Year
  Sex: Female
  Weight: 72 kg

DRUGS (3)
  1. RIBAVIRIN 200 MG [Suspect]
     Active Substance: RIBAVIRIN
     Indication: HEPATITIS C
     Dosage: FILM-COATED TABLET; 3 TABLETS IN THE MORNING, 2 TABLETS IN THE EVENING; 1000 MG/DAY
     Route: 048
     Dates: start: 20161011, end: 20161016
  2. SOVALDI [Suspect]
     Active Substance: SOFOSBUVIR
     Dosage: FILM-COATED TABLET
     Route: 048
     Dates: start: 20161011
  3. CERAZETTE [Concomitant]
     Active Substance: DESOGESTREL
     Indication: ENDOMETRIOSIS

REACTIONS (4)
  - Vertigo [Recovered/Resolved]
  - Chromaturia [Not Recovered/Not Resolved]
  - Insomnia [Recovered/Resolved]
  - Depressed mood [Recovered/Resolved]

NARRATIVE: CASE EVENT DATE: 20161011
